FAERS Safety Report 9530951 (Version 1)
Quarter: 2013Q2

REPORT INFORMATION
  Report Type: Spontaneous
  Country: US (occurrence: None)
  Receive Date: 20130418
  Receipt Date: 20130418
  Transmission Date: 20140414
  Serious: Yes (Hospitalization)
  Sender: FDA-Public Use
  Company Number: 1301XAA004004

PATIENT
  Age: 45 Year
  Sex: Female

DRUGS (9)
  1. SINGULAIR [Suspect]
     Indication: PRODUCT USED FOR UNKNOWN INDICATION
  2. XYZAL [Suspect]
     Dosage: , ORAL
  3. PRAZEPAM [Suspect]
     Dosage: , ORAL
     Route: 048
  4. ANAFRANIL [Suspect]
     Dosage: , ORAL
     Route: 048
  5. ATARAX [Suspect]
  6. CLONAZEPAM [Suspect]
     Dosage: , ORAL
     Route: 048
  7. ATHYMIL [Suspect]
     Dosage: , ORAL
     Route: 048
  8. TEGRETOL (CARBAMAZEPINE) UNKNOWN [Suspect]
     Dosage: , ORAL
     Route: 048
  9. VENTOLIN [Suspect]
     Dosage: , UNKNOWN

REACTIONS (1)
  - Hepatitis [None]
